FAERS Safety Report 4916517-7 (Version None)
Quarter: 2006Q1

REPORT INFORMATION
  Report Type: 
  Country: None (occurrence: None)
  Receive Date: 20060220
  Receipt Date: 20060106
  Transmission Date: 20060701
  Serious: Yes (Other)
  Sender: FDA-Public Use
  Company Number: PHEH2006US00847

PATIENT
  Age: 74 Year
  Sex: Female

DRUGS (4)
  1. DYNACIRC [Concomitant]
  2. HYDROCHLOROTHIAZIDE [Suspect]
  3. ZOMETA [Suspect]
     Indication: MULTIPLE MYELOMA
     Dosage: UNK QMO
     Route: 042
     Dates: start: 20050701
  4. HYZAAR [Concomitant]

REACTIONS (8)
  - ANAEMIA [None]
  - ANOREXIA [None]
  - BLOOD POTASSIUM DECREASED [None]
  - HAEMATOCRIT DECREASED [None]
  - MALAISE [None]
  - PYREXIA [None]
  - RASH MACULO-PAPULAR [None]
  - SERUM SICKNESS [None]
